FAERS Safety Report 15061073 (Version 1)
Quarter: 2018Q2

REPORT INFORMATION
  Report Type: Spontaneous
  Country: US (occurrence: US)
  Receive Date: 20180605
  Receipt Date: 20180605
  Transmission Date: 20180711
  Serious: Yes (Hospitalization)
  Sender: FDA-Public Use
  Company Number: None

PATIENT
  Age: 23 Year
  Sex: Male
  Weight: 123.4 kg

DRUGS (9)
  1. CLOZAPINE. [Suspect]
     Active Substance: CLOZAPINE
     Indication: SCHIZOPHRENIFORM DISORDER
     Route: 048
     Dates: start: 20180430, end: 20180510
  2. CLOZAPINE. [Suspect]
     Active Substance: CLOZAPINE
     Indication: PSYCHOTIC DISORDER
     Route: 048
     Dates: start: 20180430, end: 20180510
  3. CLOZAPINE. [Suspect]
     Active Substance: CLOZAPINE
     Indication: PSYCHOTIC DISORDER
     Route: 048
     Dates: start: 20180427, end: 20180504
  4. LORATADINE 10MG PO QDAY [Concomitant]
     Dates: start: 20180507, end: 20180510
  5. CLOZAPINE. [Suspect]
     Active Substance: CLOZAPINE
     Indication: SCHIZOPHRENIFORM DISORDER
     Route: 048
     Dates: start: 20180427, end: 20180504
  6. METFORMIN [Concomitant]
     Active Substance: METFORMIN HYDROCHLORIDE
     Dates: start: 20180427, end: 20180507
  7. FLUOXETINE 40MG PO QDAY [Concomitant]
     Dates: start: 20180424, end: 20180508
  8. GLYCOPYRROLATE 2MG PO QPM [Concomitant]
     Dates: start: 20180501, end: 20180510
  9. LORAZEPAM 0.5MG PO BID [Concomitant]
     Dates: start: 20180423, end: 20180507

REACTIONS (7)
  - Troponin increased [None]
  - Nausea [None]
  - Myalgia [None]
  - Electrocardiogram T wave inversion [None]
  - Electrocardiogram ST segment depression [None]
  - Eosinophilia [None]
  - Hyperhidrosis [None]

NARRATIVE: CASE EVENT DATE: 20180510
